FAERS Safety Report 9519091 (Version 1)
Quarter: 2013Q1

REPORT INFORMATION
  Report Type: Spontaneous
  Country: US (occurrence: None)
  Receive Date: 20130305
  Receipt Date: 20130305
  Transmission Date: 20140127
  Serious: Yes (Other)
  Sender: FDA-Public Use
  Company Number: 163-21880-12040499

PATIENT
  Sex: 0

DRUGS (1)
  1. REVLIMID [Suspect]
     Dosage: 15 MG, 21 IN 21 D, PO
     Route: 048
     Dates: start: 201006

REACTIONS (2)
  - Pain [None]
  - Drug dose omission [None]
